FAERS Safety Report 4504409-7 (Version None)
Quarter: 2004Q4

REPORT INFORMATION
  Report Type: 
  Country: None (occurrence: None)
  Receive Date: 20041117
  Receipt Date: 20041117
  Transmission Date: 20050328
  Serious: Yes (Hospitalization)
  Sender: FDA-Public Use
  Company Number: None

PATIENT
  Age: 82 Year
  Sex: Male

DRUGS (5)
  1. WARFARIN SODIUM [Suspect]
     Indication: ATRIAL FIBRILLATION
     Dosage: 7.5 MG QD  11.25 MG ON FRIDAY
     Dates: start: 19960601
  2. NAPROXEN [Suspect]
     Indication: PAIN
  3. FOSINOPRIL SODIUM [Concomitant]
  4. NPH INSULIN [Concomitant]
  5. NIFEDIPINE [Concomitant]

REACTIONS (2)
  - ANAEMIA [None]
  - GASTROINTESTINAL HAEMORRHAGE [None]
